FAERS Safety Report 10867180 (Version 2)
Quarter: 2015Q3

REPORT INFORMATION
  Report Type: Spontaneous
  Country: FR (occurrence: FR)
  Receive Date: 20150225
  Receipt Date: 20150811
  Transmission Date: 20151125
  Serious: Yes (Other)
  Sender: FDA-Public Use
  Company Number: FR-BRACCO-001755

PATIENT
  Age: 65 Year
  Sex: Female

DRUGS (6)
  1. ALTIM [Suspect]
     Active Substance: CORTIVAZOL
     Indication: ARTHROGRAM
     Dates: start: 20141127, end: 20141127
  2. IOPAMIRON [Suspect]
     Active Substance: IOPAMIDOL
     Indication: ARTHROGRAM
     Dates: start: 20141030, end: 20141030
  3. IOPAMIRON [Suspect]
     Active Substance: IOPAMIDOL
     Indication: ARTHROGRAM
     Dates: start: 20141127, end: 20141127
  4. ALTIM [Suspect]
     Active Substance: CORTIVAZOL
     Indication: ARTHROGRAM
     Dates: start: 20141030, end: 20141030
  5. ALTIM [Suspect]
     Active Substance: CORTIVAZOL
     Indication: ARTHROGRAM
     Dates: start: 20141113, end: 20141113
  6. IOPAMIRON [Suspect]
     Active Substance: IOPAMIDOL
     Indication: ARTHROGRAM
     Dates: start: 20141113, end: 20141113

REACTIONS (4)
  - Back pain [Unknown]
  - Tinnitus [Unknown]
  - Chromatopsia [Unknown]
  - Headache [Unknown]

NARRATIVE: CASE EVENT DATE: 20141030
